FAERS Safety Report 4730571-7 (Version None)
Quarter: 2005Q3

REPORT INFORMATION
  Report Type: 
  Country: None (occurrence: None)
  Receive Date: 20050725
  Receipt Date: 20050322
  Transmission Date: 20060218
  Serious: No
  Sender: FDA-Public Use
  Company Number: USA050393337

PATIENT
  Age: 53 Year
  Sex: Female
  Weight: 102 kg

DRUGS (5)
  1. STRATTERA [Suspect]
     Indication: ATTENTION DEFICIT/HYPERACTIVITY DISORDER
     Dosage: 80 MG DAY
     Dates: start: 20050303, end: 20050320
  2. LIPITOR [Concomitant]
  3. TOPROL-XL [Concomitant]
  4. MOTRIN [Concomitant]
  5. VITAMINS NOS [Concomitant]

REACTIONS (6)
  - BLADDER SPASM [None]
  - BLOOD PRESSURE DIASTOLIC INCREASED [None]
  - DYSURIA [None]
  - INSOMNIA [None]
  - SEXUAL DYSFUNCTION [None]
  - URINARY HESITATION [None]
